FAERS Safety Report 23132820 (Version 1)
Quarter: 2023Q4

REPORT INFORMATION
  Report Type: Spontaneous
  Country: US (occurrence: US)
  Receive Date: 20231101
  Receipt Date: 20231101
  Transmission Date: 20240109
  Serious: No
  Sender: FDA-Public Use
  Company Number: US-TARO PHARMACEUTICALS USA INC.-2022TAR01455

PATIENT

DRUGS (3)
  1. FLUOCINOLONE ACETONIDE [Suspect]
     Active Substance: FLUOCINOLONE ACETONIDE
     Indication: Dermatitis
     Dosage: UNK, OD, SCALP, SQUIRT IT OUT 6 TO 8 TIMES - TO BE ABLE TO GET MY WHOLE SCALP
     Route: 061
     Dates: start: 20221206
  2. COUMADIN [Concomitant]
     Active Substance: WARFARIN SODIUM
     Indication: Product used for unknown indication
     Dosage: UNK
     Route: 065
  3. ELIQUIS [Concomitant]
     Active Substance: APIXABAN
     Indication: Product used for unknown indication
     Dosage: UNK
     Route: 065

REACTIONS (2)
  - Paraesthesia [Unknown]
  - Off label use [Unknown]

NARRATIVE: CASE EVENT DATE: 20221206
